FAERS Safety Report 10103085 (Version 8)
Quarter: 2017Q3

REPORT INFORMATION
  Report Type: Report from Study
  Country: US (occurrence: US)
  Receive Date: 20140424
  Receipt Date: 20170905
  Transmission Date: 20171127
  Serious: Yes (Hospitalization, Other)
  Sender: FDA-Public Use
  Company Number: US-SA-2014SA000246

PATIENT
  Age: 55 Year
  Sex: Female

DRUGS (5)
  1. AUBAGIO [Suspect]
     Active Substance: TERIFLUNOMIDE
     Indication: MULTIPLE SCLEROSIS
     Route: 048
  2. AUBAGIO [Suspect]
     Active Substance: TERIFLUNOMIDE
     Indication: MULTIPLE SCLEROSIS
     Route: 048
     Dates: start: 201310
  3. AUBAGIO [Suspect]
     Active Substance: TERIFLUNOMIDE
     Indication: MULTIPLE SCLEROSIS
     Route: 048
     Dates: start: 20131223, end: 20140411
  4. AUBAGIO [Suspect]
     Active Substance: TERIFLUNOMIDE
     Indication: MULTIPLE SCLEROSIS
     Route: 048
     Dates: start: 201310
  5. LORAZEPAM. [Concomitant]
     Active Substance: LORAZEPAM
     Dosage: 0.5 MG BID PRN

REACTIONS (33)
  - Hair colour changes [Unknown]
  - Urinary incontinence [Unknown]
  - Malaise [Not Recovered/Not Resolved]
  - Rosacea [Unknown]
  - Diarrhoea [Unknown]
  - Impaired healing [Unknown]
  - Constipation [Unknown]
  - Blood pressure increased [Unknown]
  - Drug ineffective [Unknown]
  - Muscle spasms [Unknown]
  - Condition aggravated [Unknown]
  - Arthritis [Unknown]
  - Palpitations [Unknown]
  - Gastrointestinal disorder [Unknown]
  - Gout [Unknown]
  - Balance disorder [Not Recovered/Not Resolved]
  - Cognitive disorder [Unknown]
  - Oral herpes [Unknown]
  - Diarrhoea [Not Recovered/Not Resolved]
  - Pain [Not Recovered/Not Resolved]
  - Mouth ulceration [Unknown]
  - Anxiety [Unknown]
  - Depression [Unknown]
  - Fatigue [Unknown]
  - Alopecia [Recovering/Resolving]
  - Tremor [Not Recovered/Not Resolved]
  - Fungal infection [Unknown]
  - Dysgeusia [Unknown]
  - Hypersensitivity [Unknown]
  - Paraesthesia [Recovered/Resolved]
  - Amnesia [Unknown]
  - Skin burning sensation [Unknown]
  - Speech disorder [Not Recovered/Not Resolved]

NARRATIVE: CASE EVENT DATE: 201402
